FAERS Safety Report 25526266 (Version 2)
Quarter: 2025Q4

REPORT INFORMATION
  Report Type: Report from Study
  Country: EU (occurrence: EU)
  Receive Date: 20250707
  Receipt Date: 20251016
  Transmission Date: 20260118
  Serious: Yes (Life-Threatening, Hospitalization)
  Sender: PFIZER
  Company Number: EU-PFM-2025-03133

PATIENT
  Age: 57 Year
  Sex: Female
  Weight: 58 kg

DRUGS (5)
  1. ENCORAFENIB [Suspect]
     Active Substance: ENCORAFENIB
     Indication: Metastatic malignant melanoma
     Dosage: 450 MG DAILY
     Route: 065
     Dates: start: 20240606, end: 20240818
  2. BINIMETINIB [Suspect]
     Active Substance: BINIMETINIB
     Indication: Metastatic malignant melanoma
     Dosage: 90 MG DAILY
     Route: 065
     Dates: start: 20240606, end: 20240725
  3. BINIMETINIB [Suspect]
     Active Substance: BINIMETINIB
     Dosage: 60 MG DAILY
     Route: 065
     Dates: start: 20240726, end: 20240818
  4. PAROXETINE [Concomitant]
     Active Substance: PAROXETINE
     Indication: Product used for unknown indication
     Dosage: 20 MG, J
     Route: 065
  5. LEVOTHYROXINE [Concomitant]
     Active Substance: LEVOTHYROXINE
     Indication: Hypothyroidism
     Dosage: 25 UG, DAY
     Route: 065

REACTIONS (2)
  - Interstitial lung disease [Recovered/Resolved]
  - Muscle spasms [Recovered/Resolved]

NARRATIVE: CASE EVENT DATE: 20240725
